FAERS Safety Report 24278377 (Version 1)
Quarter: 2024Q3

REPORT INFORMATION
  Report Type: Spontaneous
  Country: US (occurrence: None)
  Receive Date: 20240830
  Receipt Date: 20240830
  Transmission Date: 20241017
  Serious: Yes (Hospitalization, Other)
  Sender: Public
  Company Number: None

PATIENT
  Age: 42 Year
  Sex: Female
  Weight: 76.05 kg

DRUGS (14)
  1. NIVESTYM [Suspect]
     Active Substance: FILGRASTIM-AAFI
     Indication: Neutropenia
     Dosage: 300  MG AS NEEDED SUBCUTANEOUS
     Route: 058
     Dates: start: 20240615, end: 20240804
  2. pantoprazole qhs ongoing [Concomitant]
  3. acetaminophen prn [Concomitant]
  4. ondansetron prn [Concomitant]
  5. famotidine 40 mg ongoing [Concomitant]
  6. dexamethasone  prn [Concomitant]
  7. allertec ongoing [Concomitant]
  8. diphenhydramine 25 mg  prn [Concomitant]
  9. symbicort prn asthma [Concomitant]
  10. colace prn [Concomitant]
  11. vit B 12  5mg sublingual ongoing [Concomitant]
  12. CIPROFLOXACIN [Concomitant]
     Active Substance: CIPROFLOXACIN
     Dates: start: 20240731, end: 20240804
  13. AMOXICILLIN\CLAVULANIC ACID [Concomitant]
     Active Substance: AMOXICILLIN\CLAVULANIC ACID
     Dates: start: 20240731, end: 20240804
  14. nystatin swish and swallow prn in past for oral candida [Concomitant]

REACTIONS (4)
  - Pyrexia [None]
  - Headache [None]
  - Pneumonia [None]
  - Toxicity to various agents [None]

NARRATIVE: CASE EVENT DATE: 20240805
